FAERS Safety Report 10538222 (Version 2)
Quarter: 2014Q4

REPORT INFORMATION
  Report Type: Spontaneous
  Country: TW (occurrence: TW)
  Receive Date: 20141023
  Receipt Date: 20141031
  Transmission Date: 20150529
  Serious: No
  Sender: FDA-Public Use
  Company Number: TW-PFIZER INC-2014287971

PATIENT
  Age: 71 Year
  Sex: Female

DRUGS (6)
  1. KETOSTERIL [Suspect]
     Active Substance: AMINO ACIDS
     Dosage: 6 DF, 3X/DAY
     Route: 048
  2. UNASYN [Suspect]
     Active Substance: AMPICILLIN SODIUM\SULBACTAM SODIUM
     Dosage: UNK
  3. KETOSTERIL [Suspect]
     Active Substance: AMINO ACIDS
     Dosage: 1 DF, 3X/DAY FOR EVERY OTHER DAY
     Route: 048
  4. KETOSTERIL [Suspect]
     Active Substance: AMINO ACIDS
     Indication: RENAL IMPAIRMENT
     Dosage: 3 DF, 3X/DAY
     Route: 048
     Dates: start: 201408
  5. BARACLUDE [Concomitant]
     Active Substance: ENTECAVIR
     Dosage: 0.5 DF, UNK
     Route: 048
  6. BARACLUDE [Concomitant]
     Active Substance: ENTECAVIR
     Indication: LIVER FUNCTION TEST ABNORMAL
     Dosage: 1 DF, UNK
     Route: 048

REACTIONS (1)
  - No adverse event [Not Recovered/Not Resolved]
